FAERS Safety Report 12207844 (Version 2)
Quarter: 2016Q2

REPORT INFORMATION
  Report Type: Spontaneous
  Country: FR (occurrence: FR)
  Receive Date: 20160324
  Receipt Date: 20160406
  Transmission Date: 20160815
  Serious: Yes (Life-Threatening, Hospitalization)
  Sender: FDA-Public Use
  Company Number: FR-SA-2016SA057611

PATIENT
  Age: 71 Year
  Sex: Female

DRUGS (4)
  1. FLUINDIONE [Concomitant]
     Active Substance: FLUINDIONE
     Indication: PROPHYLAXIS
  2. CLOPIDOGREL BISULFATE. [Suspect]
     Active Substance: CLOPIDOGREL BISULFATE
     Indication: ANTIPLATELET THERAPY
     Route: 065
  3. ASPIRIN. [Concomitant]
     Active Substance: ASPIRIN
     Indication: ANTIPLATELET THERAPY
  4. AMIODARONE [Concomitant]
     Active Substance: AMIODARONE

REACTIONS (5)
  - Cardiac arrest [Recovered/Resolved]
  - Vascular stent thrombosis [Recovered/Resolved]
  - Drug resistance [Unknown]
  - Ventricular fibrillation [Recovered/Resolved]
  - Electrocardiogram ST segment elevation [Recovered/Resolved]
